FAERS Safety Report 24118593 (Version 1)
Quarter: 2024Q3

REPORT INFORMATION
  Report Type: Spontaneous
  Country: US (occurrence: US)
  Receive Date: 20240722
  Receipt Date: 20240722
  Transmission Date: 20241016
  Serious: Yes (Other)
  Sender: AUROBINDO
  Company Number: US-AUROBINDO-AUR-APL-2024-029696

PATIENT
  Age: 41 Year
  Sex: Female

DRUGS (5)
  1. LACTULOSE [Suspect]
     Active Substance: LACTULOSE
     Indication: Hyperammonaemia
     Dosage: UNK
  2. LACTULOSE [Suspect]
     Active Substance: LACTULOSE
     Dosage: UNK
     Route: 048
  3. LEVETIRACETAM [Suspect]
     Active Substance: LEVETIRACETAM
     Indication: Status epilepticus
     Dosage: UNK
     Route: 065
  4. RIFAXIMIN [Suspect]
     Active Substance: RIFAXIMIN
     Indication: Hyperammonaemia
     Dosage: UNK
  5. IRON [Concomitant]
     Active Substance: IRON
     Indication: Iron deficiency anaemia
     Dosage: UNK
     Route: 042

REACTIONS (1)
  - Drug ineffective [Unknown]
